FAERS Safety Report 14901047 (Version 1)
Quarter: 2018Q2

REPORT INFORMATION
  Report Type: Spontaneous
  Country: US (occurrence: US)
  Receive Date: 20180516
  Receipt Date: 20180516
  Transmission Date: 20180711
  Serious: Yes (Other)
  Sender: FDA-Public Use
  Company Number: US-PFIZER INC-2018197272

PATIENT
  Age: 59 Year
  Sex: Female

DRUGS (1)
  1. XELJANZ XR [Suspect]
     Active Substance: TOFACITINIB CITRATE
     Dosage: 11 MG, 1X/DAY
     Dates: end: 201803

REACTIONS (13)
  - Cerebral disorder [Unknown]
  - Fatigue [Unknown]
  - Tenderness [Unknown]
  - Leukocytosis [Unknown]
  - Hyperkalaemia [Unknown]
  - Dry eye [Unknown]
  - Foot deformity [Unknown]
  - Joint swelling [Unknown]
  - Peripheral swelling [Unknown]
  - Pain in extremity [Unknown]
  - Arthralgia [Unknown]
  - Lyme disease [Unknown]
  - Hypercalcaemia [Unknown]
